FAERS Safety Report 5639927-1 (Version None)
Quarter: 2008Q1

REPORT INFORMATION
  Report Type: 
  Country: None (occurrence: None)
  Receive Date: 20080225
  Receipt Date: 20080214
  Transmission Date: 20080703
  Serious: Yes (Hospitalization)
  Sender: FDA-Public Use
  Company Number: B0508467A

PATIENT

DRUGS (2)
  1. VALTREX [Suspect]
     Indication: DRUG USE FOR UNKNOWN INDICATION
     Dosage: 1000 MG/THREE TIMES PER DAY/ORAL
     Route: 048
  2. OSELTAMIVIR PHOSPHATE [Concomitant]

REACTIONS (1)
  - PYREXIA [None]
